FAERS Safety Report 5001676-0 (Version None)
Quarter: 2006Q2

REPORT INFORMATION
  Report Type: 
  Country: None (occurrence: None)
  Receive Date: 20060511
  Receipt Date: 20060511
  Transmission Date: 20061013
  Serious: Yes (Life-Threatening, Hospitalization, Disabling, Other)
  Sender: FDA-Public Use
  Company Number: None

PATIENT
  Age: 57 Year
  Sex: Female
  Weight: 63.5036 kg

DRUGS (2)
  1. ELIDEL [Suspect]
     Dosage: APPLY AS REQ'D   DAILY
     Dates: start: 20040101, end: 20041201
  2. PROTOPIC [Suspect]
     Dosage: APPLY AS REQ'D   DAILY
     Dates: start: 20040101, end: 20040601

REACTIONS (2)
  - NEOPLASM MALIGNANT [None]
  - VULVAL CANCER RECURRENT [None]
